FAERS Safety Report 24321228 (Version 2)
Quarter: 2024Q3

REPORT INFORMATION
  Report Type: Spontaneous
  Country: US (occurrence: US)
  Receive Date: 20240916
  Receipt Date: 20240918
  Transmission Date: 20241017
  Serious: Yes (Other)
  Sender: PAREXEL
  Company Number: US-NOVEN PHARMACEUTICALS, INC.-2024-NOV-US001185

PATIENT
  Age: 73 Year
  Sex: Female
  Weight: 47.63 kg

DRUGS (1)
  1. ESTRADIOL [Suspect]
     Active Substance: ESTRADIOL
     Indication: Menopausal symptoms
     Dosage: 0.025 MG, UNKNOWN
     Route: 062

REACTIONS (1)
  - Breast cyst [Recovered/Resolved]
